FAERS Safety Report 7595878-7 (Version None)
Quarter: 2011Q3

REPORT INFORMATION
  Report Type: 
  Country: None (occurrence: None)
  Receive Date: 20110707
  Receipt Date: 20110624
  Transmission Date: 20111222
  Serious: Yes (Hospitalization, Other)
  Sender: FDA-Public Use
  Company Number: DE-UCBSA-036205

PATIENT
  Age: 51 Year
  Sex: Male

DRUGS (15)
  1. LEVETIRACETAM [Suspect]
     Indication: EPILEPSY
  2. VALPROATE SODIUM [Concomitant]
     Indication: EPILEPSY
  3. VALPROATE SODIUM [Concomitant]
  4. CARBAMAZEPINE [Concomitant]
     Indication: EPILEPSY
     Dosage: 600-800 MG/DAY
  5. VALPROATE SODIUM [Concomitant]
     Dosage: MAX. 2400 MG
  6. CARBAMAZEPINE [Concomitant]
  7. CARBAMAZEPINE [Concomitant]
     Dosage: 800 MG
  8. VIMPAT [Suspect]
     Dosage: MAX DOSE OF 2X200 MG
  9. VALPROATE SODIUM [Concomitant]
     Dosage: 2 X 500 MG
  10. CARBAMAZEPINE [Concomitant]
     Dosage: MAX DAILY DOSE- 1600 MG
  11. CARBAMAZEPINE [Concomitant]
     Dosage: 1600 MG
  12. CARBAMAZEPINE [Concomitant]
     Dosage: 600 MG/D
  13. CARBAMAZEPINE [Concomitant]
     Dosage: 1600 MG
  14. VIMPAT [Suspect]
     Indication: EPILEPSY
  15. CARBAMAZEPINE [Concomitant]
     Dosage: 800 MG

REACTIONS (4)
  - CONVULSION [None]
  - GRAND MAL CONVULSION [None]
  - DELIRIUM [None]
  - AGGRESSION [None]
